FAERS Safety Report 18600506 (Version 2)
Quarter: 2020Q4

REPORT INFORMATION
  Report Type: Spontaneous
  Country: FR (occurrence: FR)
  Receive Date: 20201210
  Receipt Date: 20201214
  Transmission Date: 20210114
  Serious: Yes (Other)
  Sender: FDA-Public Use
  Company Number: FR-PFIZER INC-9804984

PATIENT
  Age: 37 Year
  Sex: Male

DRUGS (16)
  1. ITRACONAZOLE. [Suspect]
     Active Substance: ITRACONAZOLE
     Indication: MENINGITIS CRYPTOCOCCAL
     Dosage: 600 MG, DAILY
     Route: 048
     Dates: start: 19950405, end: 19951108
  2. MISOPROSTOL. [Concomitant]
     Active Substance: MISOPROSTOL
     Dosage: UNK
     Route: 048
     Dates: start: 199506
  3. CLONAZEPAM. [Concomitant]
     Active Substance: CLONAZEPAM
     Dosage: UNK
     Route: 048
     Dates: start: 19950405, end: 19951030
  4. FLUCONAZOLE. [Suspect]
     Active Substance: FLUCONAZOLE
     Indication: MENINGITIS CRYPTOCOCCAL
     Dosage: 400 MG, DAILY
     Route: 048
     Dates: start: 199503, end: 199506
  5. FLUCYTOSINE. [Concomitant]
     Active Substance: FLUCYTOSINE
     Dosage: 50 MG/KG, EVERY 8 HOURS
     Dates: start: 199503
  6. FLUCONAZOLE. [Suspect]
     Active Substance: FLUCONAZOLE
     Dosage: 400 MG, DAILY
     Route: 048
     Dates: start: 199508
  7. PREDNISONE. [Concomitant]
     Active Substance: PREDNISONE
     Dosage: UNK
     Route: 048
     Dates: start: 19950405
  8. FLUCONAZOLE. [Suspect]
     Active Substance: FLUCONAZOLE
     Indication: MENINGITIS CRYPTOCOCCAL
     Dosage: 800 MG, DAILY FOR FOUR WEEKS
     Route: 042
     Dates: start: 19941031
  9. SULFADIAZINE. [Concomitant]
     Active Substance: SULFADIAZINE
     Dosage: 6 G, DAILY
     Dates: start: 19950311, end: 19950326
  10. PIRACETAM [Concomitant]
     Active Substance: PIRACETAM
     Dosage: UNK
     Route: 048
     Dates: start: 199508
  11. PYRIMETHAMINE [Concomitant]
     Active Substance: PYRIMETHAMINE
     Dosage: 100 MG, DAILY
     Dates: start: 19950311, end: 19950326
  12. SULFAMETHOXAZOLE/TRIMETHOPRIM [Concomitant]
     Active Substance: SULFAMETHOXAZOLE\TRIMETHOPRIM
     Dosage: UNK
     Route: 048
     Dates: start: 1994, end: 19960109
  13. CARBAMAZEPINE. [Concomitant]
     Active Substance: CARBAMAZEPINE
     Dosage: UNK
     Route: 048
     Dates: start: 199503
  14. SULFADIAZINE. [Concomitant]
     Active Substance: SULFADIAZINE
     Dosage: 3 G, DAILY
     Dates: start: 19950210
  15. PYRIMETHAMINE [Concomitant]
     Active Substance: PYRIMETHAMINE
     Dosage: 50 MG, DAILY
     Dates: start: 19950210
  16. AMPHOTERICIN B. [Concomitant]
     Active Substance: AMPHOTERICIN B
     Dosage: 1 MG/KG, DAILY
     Route: 042
     Dates: start: 199503

REACTIONS (2)
  - Drug resistance [Unknown]
  - Intentional product use issue [Unknown]

NARRATIVE: CASE EVENT DATE: 199412
